FAERS Safety Report 7897721-5 (Version None)
Quarter: 2011Q4

REPORT INFORMATION
  Report Type: 
  Country: None (occurrence: None)
  Receive Date: 20111107
  Receipt Date: 20111103
  Transmission Date: 20120403
  Serious: Yes (Death)
  Sender: FDA-Public Use
  Company Number: US-PFIZER INC-2011269442

PATIENT
  Sex: Female

DRUGS (2)
  1. CADUET [Suspect]
  2. ZOLOFT [Suspect]

REACTIONS (1)
  - DEATH [None]
